FAERS Safety Report 9302404 (Version 1)
Quarter: 2013Q2

REPORT INFORMATION
  Report Type: Spontaneous
  Country: US (occurrence: US)
  Receive Date: 20130522
  Receipt Date: 20130522
  Transmission Date: 20140414
  Serious: Yes (Other)
  Sender: FDA-Public Use
  Company Number: US-BIOGENIDEC-2013BI043745

PATIENT
  Sex: Male

DRUGS (6)
  1. AVONEX [Suspect]
     Indication: MULTIPLE SCLEROSIS
     Route: 030
     Dates: start: 20080924
  2. AVONEX [Suspect]
     Indication: MULTIPLE SCLEROSIS
     Route: 030
  3. PLAVIX [Concomitant]
     Route: 048
  4. TOPROL XL [Concomitant]
     Route: 048
  5. NITROQUICK [Concomitant]
  6. LYRICA [Concomitant]
     Route: 048

REACTIONS (5)
  - Convulsion [Not Recovered/Not Resolved]
  - Cardiac failure congestive [Not Recovered/Not Resolved]
  - Cardiomyopathy [Not Recovered/Not Resolved]
  - High density lipoprotein decreased [Unknown]
  - Nuclear magnetic resonance imaging brain abnormal [Unknown]
